FAERS Safety Report 8340097-X (Version None)
Quarter: 2012Q2

REPORT INFORMATION
  Report Type: 
  Country: None (occurrence: None)
  Receive Date: 20120507
  Receipt Date: 20120503
  Transmission Date: 20120825
  Serious: Yes (Hospitalization)
  Sender: FDA-Public Use
  Company Number: CH-BAYER-2012-042338

PATIENT
  Sex: Male

DRUGS (9)
  1. METFORMIN HCL [Concomitant]
     Dosage: TOTAL DAILY DOSE 1700
     Route: 048
  2. KONAKION [Concomitant]
     Dosage: UNK UNK, QOD
     Route: 048
  3. TORASEMIDE [Concomitant]
     Dosage: TOTAL DAILY DOSE 5 - 10
     Route: 048
  4. SORAFENIB (RAF KINASE INHIBITOR) [Suspect]
     Indication: HEPATIC NEOPLASM MALIGNANT
     Dosage: DAILY DOSE 400 MG
     Route: 048
     Dates: start: 20120314, end: 20120423
  5. ALDACTONE [Concomitant]
     Dosage: TOTAL DAILY DOSE 100 - 200
     Route: 048
  6. BECOZYM FORTE [Concomitant]
     Dosage: UNK
     Dates: start: 20120405
  7. INDERAL [Concomitant]
     Dosage: TOTAL DAILY DOSE 80
     Route: 048
  8. LANSOPRAZOLE [Concomitant]
     Dosage: TOTAL DAILY DOSE 30
     Route: 048
  9. TRAMADOL HYDROCHLORIDE [Concomitant]
     Dosage: UNK

REACTIONS (3)
  - ASCITES [None]
  - HEPATIC NEOPLASM MALIGNANT [None]
  - HEPATIC FUNCTION ABNORMAL [None]
